FAERS Safety Report 20578125 (Version 1)
Quarter: 2022Q1

REPORT INFORMATION
  Report Type: Report from Study
  Country: CO (occurrence: CO)
  Receive Date: 20220310
  Receipt Date: 20220310
  Transmission Date: 20220423
  Serious: Yes (Death, Hospitalization)
  Sender: FDA-Public Use
  Company Number: CO-JNJFOC-20220309195

PATIENT
  Age: 43 Year
  Sex: Female
  Weight: 43 kg

DRUGS (1)
  1. SIMPONI [Suspect]
     Active Substance: GOLIMUMAB
     Indication: Ankylosing spondylitis
     Route: 058
     Dates: start: 20210216, end: 20211228

REACTIONS (4)
  - Death [Fatal]
  - COVID-19 [Unknown]
  - Urinary retention [Unknown]
  - Constipation [Unknown]
